FAERS Safety Report 6381796-9 (Version None)
Quarter: 2009Q3

REPORT INFORMATION
  Report Type: 
  Country: None (occurrence: None)
  Receive Date: 20090930
  Receipt Date: 20090917
  Transmission Date: 20100115
  Serious: Yes (Death)
  Sender: FDA-Public Use
  Company Number: DE-RANBAXY-2009RR-28199

PATIENT
  Age: 77 Year
  Sex: Female

DRUGS (11)
  1. AMIODARONE HCL [Suspect]
     Indication: ATRIAL FIBRILLATION
     Dosage: 200 MG, QD
  2. CLINDAMYCIN [Suspect]
     Dosage: 1800 MG, QD
  3. MARCUMAR [Suspect]
  4. ATROVENT [Concomitant]
     Dosage: 1500 UG, QD
  5. BENALAPRIL [Concomitant]
     Dosage: 10 MG, QD
  6. EUTHYROX 150 [Concomitant]
     Dosage: 1 DF, QD
  7. FLUCTIN [Concomitant]
     Dosage: 40 MG, QD
  8. FUROSEMID [Concomitant]
     Dosage: 60 MG, QD
  9. PULMICORT [Concomitant]
     Dosage: 800 UG, QD
  10. ALBUTEROL [Concomitant]
     Dosage: 600 UG, QD
  11. SPIRONOLACTONE [Concomitant]
     Dosage: 25 MG, QD

REACTIONS (1)
  - HEPATIC FAILURE [None]
